FAERS Safety Report 6644724-4 (Version None)
Quarter: 2010Q1

REPORT INFORMATION
  Report Type: 
  Country: None (occurrence: None)
  Receive Date: 20100322
  Receipt Date: 20100310
  Transmission Date: 20100710
  Serious: Yes (Disabling)
  Sender: FDA-Public Use
  Company Number: US-SANOFI-AVENTIS-2010SA014540

PATIENT
  Sex: Male

DRUGS (1)
  1. ELOXATIN [Suspect]
     Route: 041

REACTIONS (5)
  - INFUSION SITE EXTRAVASATION [None]
  - MUSCLE ATROPHY [None]
  - MUSCULAR WEAKNESS [None]
  - MUSCULOSKELETAL PAIN [None]
  - PAIN [None]
